FAERS Safety Report 14683112 (Version 1)
Quarter: 2018Q1

REPORT INFORMATION
  Report Type: Spontaneous
  Country: BR (occurrence: BR)
  Receive Date: 20180327
  Receipt Date: 20180327
  Transmission Date: 20180509
  Serious: Yes (Other)
  Sender: FDA-Public Use
  Company Number: BR-ROCHE-2089924

PATIENT
  Sex: Female

DRUGS (1)
  1. KADCYLA [Suspect]
     Active Substance: ADO-TRASTUZUMAB EMTANSINE
     Indication: BREAST CANCER METASTATIC
     Route: 065
     Dates: start: 20171213

REACTIONS (9)
  - Gait disturbance [Unknown]
  - Spinal pain [Unknown]
  - Ill-defined disorder [Unknown]
  - Dysphagia [Unknown]
  - Dysgraphia [Unknown]
  - Neuralgia [Unknown]
  - Pain in extremity [Unknown]
  - Loss of personal independence in daily activities [Unknown]
  - Eating disorder [Unknown]
